FAERS Safety Report 21810959 (Version 1)
Quarter: 2023Q1

REPORT INFORMATION
  Report Type: Spontaneous
  Country: FR (occurrence: FR)
  Receive Date: 20230103
  Receipt Date: 20230103
  Transmission Date: 20230418
  Serious: Yes (Other)
  Sender: FDA-Public Use
  Company Number: None

PATIENT
  Age: 53 Year
  Sex: Male
  Weight: 100 kg

DRUGS (1)
  1. ULTRAVIST [Suspect]
     Active Substance: IOPROMIDE
     Indication: Osteoarthritis
     Route: 014
     Dates: start: 20220909, end: 20220909

REACTIONS (1)
  - Synovitis [Recovering/Resolving]

NARRATIVE: CASE EVENT DATE: 20221009
